FAERS Safety Report 8076179-X (Version None)
Quarter: 2012Q1

REPORT INFORMATION
  Report Type: 
  Country: None (occurrence: None)
  Receive Date: 20120127
  Receipt Date: 20120120
  Transmission Date: 20120608
  Serious: Yes (Other)
  Sender: FDA-Public Use
  Company Number: DE-ROXANE LABORATORIES, INC.-2012-RO-00515RO

PATIENT
  Age: 55 Year
  Sex: Female

DRUGS (6)
  1. DEXAMETHASONE [Suspect]
     Indication: EVIDENCE BASED TREATMENT
     Dosage: 8 MG
     Route: 042
  2. DACARBAZINE [Suspect]
     Indication: THYROID CANCER
  3. VINCRISTINE [Suspect]
     Indication: THYROID CANCER
  4. MESNA [Suspect]
  5. GRANISETRON [Suspect]
     Indication: EVIDENCE BASED TREATMENT
     Dosage: 3 MG
     Route: 042
  6. CYCLOPHOSPHAMIDE [Suspect]
     Indication: THYROID CANCER

REACTIONS (1)
  - FATIGUE [None]
